FAERS Safety Report 7583866-6 (Version None)
Quarter: 2011Q2

REPORT INFORMATION
  Report Type: 
  Country: None (occurrence: None)
  Receive Date: 20110628
  Receipt Date: 20110628
  Transmission Date: 20111010
  Serious: No
  Sender: FDA-Public Use
  Company Number: None

PATIENT
  Age: 67 Year
  Sex: Male
  Weight: 101.6057 kg

DRUGS (1)
  1. TAMSULOSIN HCL [Suspect]

REACTIONS (5)
  - NOCTURIA [None]
  - PRODUCT SUBSTITUTION ISSUE [None]
  - URINE FLOW DECREASED [None]
  - MICTURITION URGENCY [None]
  - POLLAKIURIA [None]
